FAERS Safety Report 19078056 (Version 1)
Quarter: 2021Q1

REPORT INFORMATION
  Report Type: Spontaneous
  Country: US (occurrence: US)
  Receive Date: 20210331
  Receipt Date: 20210331
  Transmission Date: 20210420
  Serious: Yes (Hospitalization)
  Sender: FDA-Public Use
  Company Number: None

PATIENT
  Age: 60 Year
  Sex: Male
  Weight: 228 kg

DRUGS (6)
  1. CLOPIDOGREL [Concomitant]
     Active Substance: CLOPIDOGREL BISULFATE
     Dates: start: 20190815
  2. METHYLPHENIDATE ER [Concomitant]
     Active Substance: METHYLPHENIDATE
     Dates: start: 20180922, end: 20210330
  3. METOPROLOL TARTRATE. [Concomitant]
     Active Substance: METOPROLOL TARTRATE
     Dates: start: 20190627, end: 20210330
  4. APIRIN [Concomitant]
     Dates: start: 20190815, end: 20210330
  5. ROSUVASTATIN. [Concomitant]
     Active Substance: ROSUVASTATIN
     Dates: start: 20190726, end: 20210330
  6. BAMLANIVIMAB. [Suspect]
     Active Substance: BAMLANIVIMAB
     Indication: COVID-19
     Dosage: ?          OTHER FREQUENCY:ONCE;?
     Dates: start: 20210323, end: 20210323

REACTIONS (14)
  - Myalgia [None]
  - Atrial fibrillation [None]
  - Transaminases increased [None]
  - Pyrexia [None]
  - Fibrin D dimer [None]
  - Pneumonia [None]
  - Fatigue [None]
  - Dyspnoea [None]
  - Condition aggravated [None]
  - Blood calcium decreased [None]
  - Cough [None]
  - Palpitations [None]
  - Tachycardia [None]
  - Hypoalbuminaemia [None]

NARRATIVE: CASE EVENT DATE: 20210326
